FAERS Safety Report 10803354 (Version 1)
Quarter: 2015Q1

REPORT INFORMATION
  Report Type: Spontaneous
  Country: US (occurrence: US)
  Receive Date: 20150217
  Receipt Date: 20150217
  Transmission Date: 20150721
  Serious: Yes (Other)
  Sender: FDA-Public Use
  Company Number: US-FRI-1000073787

PATIENT
  Age: 64 Year
  Sex: Female
  Weight: 69.4 kg

DRUGS (14)
  1. VIIBRYD [Suspect]
     Active Substance: VILAZODONE HYDROCHLORIDE
     Dosage: 10 MG
     Route: 048
     Dates: start: 20140319, end: 20140320
  2. ENSURE [Concomitant]
     Active Substance: AMINO ACIDS\DEXTROSE\ELECTROLYTES NOS\SOYBEAN OIL\VITAMINS
  3. SIMVASTATIN. [Concomitant]
     Active Substance: SIMVASTATIN
  4. ALPRAZOLAM. [Concomitant]
     Active Substance: ALPRAZOLAM
  5. TRAMADOL [Concomitant]
     Active Substance: TRAMADOL
  6. ASPIRIN. [Concomitant]
     Active Substance: ASPIRIN
  7. WOMENS ONE A DAY [Concomitant]
  8. LACTAID [Concomitant]
     Active Substance: LACTASE
  9. TEATREE OIL [Concomitant]
     Indication: TINEA INFECTION
     Route: 061
  10. DICYCLOMINE [Concomitant]
     Active Substance: DICYCLOMINE HYDROCHLORIDE
  11. FLUVOXAMINE [Concomitant]
     Active Substance: FLUVOXAMINE
  12. VIIBRYD [Suspect]
     Active Substance: VILAZODONE HYDROCHLORIDE
     Indication: DEPRESSION
     Dosage: 20 MG
     Route: 048
     Dates: start: 20140305, end: 20140318
  13. LEVOTHYROXINE [Concomitant]
     Active Substance: LEVOTHYROXINE
  14. CALCIUM WITH VITAMIN D [Concomitant]
     Active Substance: CALCIUM\VITAMIN D

REACTIONS (10)
  - Abdominal pain [Unknown]
  - Irritable bowel syndrome [Unknown]
  - Anxiety [Unknown]
  - Adrenocortical insufficiency acute [Unknown]
  - Feeding disorder [Unknown]
  - Insomnia [Unknown]
  - Hypervigilance [Unknown]
  - Weight decreased [Unknown]
  - Lactose intolerance [Unknown]
  - Nausea [Unknown]

NARRATIVE: CASE EVENT DATE: 20140308
